FAERS Safety Report 20978963 (Version 11)
Quarter: 2024Q1

REPORT INFORMATION
  Report Type: Other
  Country: CA (occurrence: None)
  Receive Date: 20220619
  Receipt Date: 20240301
  Transmission Date: 20240409
  Serious: No
  Sender: FDA-Public Use
  Company Number: CA-ROCHE-2700766

PATIENT
  Age: 40 Year
  Sex: Female

DRUGS (8)
  1. OCREVUS [Suspect]
     Active Substance: OCRELIZUMAB
     Indication: Relapsing-remitting multiple sclerosis
     Dosage: 300 MG AT DAY 0 AND 14, THEN 600 MG EVERY 6 MONTH; DAY 0, 14 THEN 600 MG Q6M, 300MG IN 10ML VIAL X 2
     Route: 042
     Dates: start: 20200318
  2. OCREVUS [Suspect]
     Active Substance: OCRELIZUMAB
     Indication: Progressive multiple sclerosis
     Dosage: 600MG Q6 MONTHS OVER 3.5 HRS
     Route: 042
     Dates: start: 20230120
  3. AMITRIPTYLINE [Suspect]
     Active Substance: AMITRIPTYLINE
     Indication: Product used for unknown indication
     Route: 065
  4. COD LIVER OIL [Concomitant]
     Active Substance: COD LIVER OIL
  5. FOLIC ACID [Concomitant]
     Active Substance: FOLIC ACID
  6. TRAMADOL [Concomitant]
     Active Substance: TRAMADOL\TRAMADOL HYDROCHLORIDE
     Indication: Pain
  7. GABAPENTIN [Concomitant]
     Active Substance: GABAPENTIN
  8. TELMISARTAN [Concomitant]
     Active Substance: TELMISARTAN

REACTIONS (34)
  - Hypertension [Recovered/Resolved]
  - Pain in extremity [Not Recovered/Not Resolved]
  - Musculoskeletal stiffness [Not Recovered/Not Resolved]
  - Back pain [Recovered/Resolved]
  - Neck pain [Not Recovered/Not Resolved]
  - Pharyngeal disorder [Not Recovered/Not Resolved]
  - Dysphagia [Not Recovered/Not Resolved]
  - Odynophagia [Not Recovered/Not Resolved]
  - Bone pain [Not Recovered/Not Resolved]
  - Lymphadenopathy [Not Recovered/Not Resolved]
  - Tremor [Recovered/Resolved]
  - Migraine [Recovered/Resolved]
  - Back pain [Recovered/Resolved]
  - Neuropathy peripheral [Recovering/Resolving]
  - Sleep apnoea syndrome [Recovering/Resolving]
  - Depression [Not Recovered/Not Resolved]
  - Brain fog [Not Recovered/Not Resolved]
  - Fatigue [Recovered/Resolved]
  - Anxiety [Not Recovered/Not Resolved]
  - Headache [Not Recovered/Not Resolved]
  - Nightmare [Recovering/Resolving]
  - Constipation [Recovered/Resolved]
  - Infusion related reaction [Recovering/Resolving]
  - Insomnia [Recovered/Resolved]
  - Infusion related reaction [Recovered/Resolved]
  - Influenza like illness [Recovered/Resolved]
  - Pain in extremity [Recovered/Resolved]
  - Spinal pain [Recovered/Resolved]
  - Arthralgia [Recovered/Resolved]
  - COVID-19 [Recovered/Resolved]
  - COVID-19 [Recovered/Resolved]
  - Pain [Unknown]
  - Cognitive disorder [Unknown]
  - Fatigue [Unknown]

NARRATIVE: CASE EVENT DATE: 20200330
